FAERS Safety Report 6318123-9 (Version None)
Quarter: 2009Q3

REPORT INFORMATION
  Report Type: 
  Country: None (occurrence: None)
  Receive Date: 20090821
  Receipt Date: 20090813
  Transmission Date: 20100115
  Serious: Yes (Other)
  Sender: FDA-Public Use
  Company Number: B0579510A

PATIENT
  Sex: Female

DRUGS (8)
  1. ALLI [Suspect]
     Route: 048
  2. SALBUTAMOL [Concomitant]
  3. CARDURA [Concomitant]
     Dosage: 4MG PER DAY
  4. LEVOTHYROXINE [Concomitant]
  5. VENTOLIN [Concomitant]
     Dosage: 100MCG AS REQUIRED
     Route: 055
  6. CO-AMILOFRUSE [Concomitant]
  7. SLO-PHYLLIN [Concomitant]
     Dosage: 250MG TWICE PER DAY
  8. FLUTICASONE [Concomitant]
     Dosage: 2PUFF TWICE PER DAY

REACTIONS (2)
  - ANAPHYLACTIC SHOCK [None]
  - SWOLLEN TONGUE [None]
